FAERS Safety Report 9886792 (Version 1)
Quarter: 2014Q1

REPORT INFORMATION
  Report Type: Report from Study
  Country: JP (occurrence: JP)
  Receive Date: 20140210
  Receipt Date: 20140210
  Transmission Date: 20141002
  Serious: Yes (Other)
  Sender: FDA-Public Use
  Company Number: JP-BAXTER-2014BAX004648

PATIENT
  Age: 91 Year
  Sex: Female

DRUGS (2)
  1. GAMMAGARD FOR INJECTION 2.5G [Suspect]
     Indication: APLASIA PURE RED CELL
     Route: 042
  2. GAMMAGARD FOR INJECTION 2.5G [Suspect]
     Indication: OFF LABEL USE

REACTIONS (1)
  - No therapeutic response [Unknown]
